FAERS Safety Report 12809234 (Version 1)
Quarter: 2016Q4

REPORT INFORMATION
  Report Type: Spontaneous
  Country: US (occurrence: US)
  Receive Date: 20161004
  Receipt Date: 20161004
  Transmission Date: 20170207
  Serious: No
  Sender: FDA-Public Use
  Company Number: US-ELI_LILLY_AND_COMPANY-US201609011619

PATIENT
  Age: 55 Year
  Sex: Female

DRUGS (4)
  1. CORTISOL [Suspect]
     Active Substance: HYDROCORTISONE
     Indication: BACK PAIN
     Dosage: UNK, UNKNOWN
     Route: 065
  2. HUMALOG MIX75/25 [Suspect]
     Active Substance: INSULIN LISPRO
     Indication: TYPE 2 DIABETES MELLITUS
     Dosage: 10 U, TID
     Route: 065
     Dates: start: 2015
  3. HUMALOG MIX75/25 [Suspect]
     Active Substance: INSULIN LISPRO
     Dosage: 10 U, TID
     Route: 065
     Dates: start: 2015
  4. HUMALOG MIX75/25 [Suspect]
     Active Substance: INSULIN LISPRO
     Dosage: 10 U, TID
     Route: 065
     Dates: start: 2015

REACTIONS (9)
  - Fungal infection [Unknown]
  - Vulvovaginal discomfort [Unknown]
  - Blood glucose increased [Unknown]
  - Dyspepsia [Unknown]
  - Blood glucose abnormal [Unknown]
  - Dysuria [Unknown]
  - Incorrect drug administration duration [Unknown]
  - Abdominal pain upper [Unknown]
  - Urine odour abnormal [Unknown]

NARRATIVE: CASE EVENT DATE: 20160919
